FAERS Safety Report 6240707 (Version 20)
Quarter: 2013Q1

REPORT INFORMATION
  Report Type: Spontaneous
  Country: US (occurrence: US)
  Receive Date: 20070219
  Receipt Date: 20130122
  Transmission Date: 20140127
  Serious: Yes (Hospitalization, Other)
  Sender: FDA-Public Use
  Company Number: PHEH2007US01705

PATIENT
  Age: 68 Year
  Sex: Male
  Weight: 76.64 kg

DRUGS (34)
  1. ZOMETA [Suspect]
     Indication: OSTEOPOROSIS
     Dosage: 4 MG, QMO
     Route: 042
     Dates: start: 20030909, end: 20060911
  2. DILACOR [Concomitant]
     Dosage: 180 MG, QD
  3. KEPPRA [Concomitant]
  4. LOVASTIN [Concomitant]
     Dosage: 40 MG, UNK
  5. TYLENOL WITH CODEINE [Concomitant]
  6. ZANTAC [Concomitant]
     Dosage: 150 MG, QD
  7. ZOLOFT (SERTRALINE HYDROCHLORIDE) [Concomitant]
     Dates: start: 20060613
  8. SERTRALINE [Concomitant]
     Dates: start: 20060910
  9. IMMUNOGLOBULINS [Concomitant]
     Dates: start: 200308
  10. CENTRUM [Concomitant]
  11. BABY ASPIRIN [Concomitant]
  12. VITAMIN C [Concomitant]
     Dosage: 500 MG, QD
  13. IBUPROFEN [Concomitant]
  14. NEURONTIN [Concomitant]
     Dosage: 600 MG, QD
  15. PREDNISONE [Concomitant]
     Dosage: 20 MG, QOD
  16. MELPHALAN [Concomitant]
  17. RADIATION THERAPY [Concomitant]
  18. TRENTAL ^ALBERT-ROUSSEL^ [Concomitant]
     Dosage: 400 MG, TID
  19. FOSAMAX [Concomitant]
     Dosage: 10 MG, QD
  20. MOTRIN [Concomitant]
  21. PRAVACHOL [Concomitant]
  22. IMURAN [Concomitant]
  23. CELEBREX [Concomitant]
  24. FLOMAX ^BOEHRINGER INGELHEIM^ [Concomitant]
  25. AZITHROMYCIN [Concomitant]
  26. CIALIS ^GLAXOSMITHKLINE^ [Concomitant]
  27. DARVOCET-N [Concomitant]
  28. MEVACOR [Concomitant]
  29. CALCIUM [Concomitant]
  30. TEGRETOL [Concomitant]
     Route: 048
  31. FLOMAX ^BOEHRINGER INGELHEIM^ [Concomitant]
  32. CIPRO [Concomitant]
  33. ZOCOR [Concomitant]
  34. LIDOCAINE [Concomitant]

REACTIONS (74)
  - Benign bone neoplasm [Unknown]
  - Salivary gland adenoma [Unknown]
  - Osteonecrosis of jaw [Unknown]
  - Bone disorder [Unknown]
  - Pain [Unknown]
  - Deformity [Unknown]
  - Hypophagia [Unknown]
  - Pain in jaw [Unknown]
  - Emotional distress [Unknown]
  - Anxiety [Unknown]
  - General physical health deterioration [Unknown]
  - Decreased interest [Unknown]
  - Mucosal inflammation [Unknown]
  - Tooth abscess [Unknown]
  - Cerebrovascular accident [Unknown]
  - Cerebral arteriosclerosis [Unknown]
  - Sleep apnoea syndrome [Unknown]
  - Amyloidosis [Recovering/Resolving]
  - Ischaemia [Unknown]
  - Ill-defined disorder [Unknown]
  - Haemorrhoids [Recovering/Resolving]
  - Arthritis [Unknown]
  - Rectal haemorrhage [Unknown]
  - Cellulitis [Unknown]
  - Benign prostatic hyperplasia [Unknown]
  - Prostatic specific antigen increased [Unknown]
  - Exostosis of jaw [Unknown]
  - Herpes zoster [Unknown]
  - Depression [Unknown]
  - Pulpitis dental [Unknown]
  - Osteoporosis [Unknown]
  - Seborrhoeic keratosis [Unknown]
  - Spinal osteoarthritis [Unknown]
  - Osteopenia [Unknown]
  - Bone lesion [Unknown]
  - Claustrophobia [Unknown]
  - Cerebral ischaemia [Unknown]
  - Vision blurred [Unknown]
  - Visual field defect [Unknown]
  - Body height decreased [Unknown]
  - Gastrooesophageal reflux disease [Unknown]
  - Urinary hesitation [Unknown]
  - Nocturia [Unknown]
  - Cough [Unknown]
  - Bursitis [Unknown]
  - Sarcoma [Unknown]
  - Actinic keratosis [Unknown]
  - Basal cell carcinoma [Unknown]
  - Optic neuritis [Unknown]
  - Ear pain [Unknown]
  - Transient ischaemic attack [Unknown]
  - Headache [Unknown]
  - Nasopharyngitis [Unknown]
  - Prostate cancer [Unknown]
  - Urinary retention [Unknown]
  - Coronary artery disease [Unknown]
  - Erectile dysfunction [Unknown]
  - Viral upper respiratory tract infection [Unknown]
  - Rhinitis [Unknown]
  - Nasal congestion [Unknown]
  - Upper-airway cough syndrome [Unknown]
  - Urinary tract infection [Unknown]
  - Testicular pain [Unknown]
  - Haematuria [Recovered/Resolved]
  - Osteolysis [Unknown]
  - Hiatus hernia [Unknown]
  - Thyroid cyst [Unknown]
  - Goitre [Unknown]
  - Skin fibrosis [Unknown]
  - Amnesia [Unknown]
  - Dysphonia [Unknown]
  - Dysphagia [Unknown]
  - Tooth fracture [Unknown]
  - Tooth infection [Unknown]
